FAERS Safety Report 5327394-7 (Version None)
Quarter: 2007Q2

REPORT INFORMATION
  Report Type: 
  Country: None (occurrence: None)
  Receive Date: 20070511
  Receipt Date: 20070425
  Transmission Date: 20071010
  Serious: Yes (Other)
  Sender: FDA-Public Use
  Company Number: 4619

PATIENT
  Age: 67 Year
  Sex: Male

DRUGS (1)
  1. CIPROFLOXACIN [Suspect]
     Indication: CORNEAL EPITHELIUM DEFECT

REACTIONS (3)
  - CORNEAL DEPOSITS [None]
  - CORNEAL EPITHELIUM DEFECT [None]
  - WRONG DRUG ADMINISTERED [None]
